FAERS Safety Report 17966006 (Version 5)
Quarter: 2020Q4

REPORT INFORMATION
  Report Type: Report from Study
  Country: US (occurrence: US)
  Receive Date: 20200630
  Receipt Date: 20201207
  Transmission Date: 20210113
  Serious: No
  Sender: FDA-Public Use
  Company Number: NVSC2020US184658

PATIENT
  Age: 70 Year
  Sex: Female

DRUGS (3)
  1. MAYZENT [Suspect]
     Active Substance: SIPONIMOD
     Route: 048
  2. MAYZENT [Suspect]
     Active Substance: SIPONIMOD
     Indication: PRODUCT USED FOR UNKNOWN INDICATION
     Dosage: 2 MG, QD
     Route: 048
     Dates: start: 20200627, end: 20200627
  3. MAYZENT [Suspect]
     Active Substance: SIPONIMOD
     Dosage: 2 MG, QD
     Route: 048

REACTIONS (10)
  - Headache [Recovered/Resolved]
  - Balance disorder [Unknown]
  - Dizziness [Unknown]
  - Feeling hot [Unknown]
  - Gait disturbance [Unknown]
  - Fatigue [Unknown]
  - Condition aggravated [Unknown]
  - Feeling abnormal [Unknown]
  - Dysstasia [Unknown]
  - Drug ineffective [Unknown]

NARRATIVE: CASE EVENT DATE: 20200627
